FAERS Safety Report 9705583 (Version 1)
Quarter: 2013Q4

REPORT INFORMATION
  Report Type: Spontaneous
  Country: US (occurrence: US)
  Receive Date: 20131122
  Receipt Date: 20131122
  Transmission Date: 20140711
  Serious: No
  Sender: FDA-Public Use
  Company Number: US-GILEAD-2008-0017101

PATIENT
  Age: 49 Year
  Sex: Female
  Weight: 61.69 kg

DRUGS (9)
  1. LETAIRIS [Suspect]
     Indication: PULMONARY ARTERIAL HYPERTENSION
     Route: 048
     Dates: start: 20080609
  2. REVATIO [Concomitant]
     Route: 048
  3. NORVASC [Concomitant]
     Route: 048
  4. NADOLOL [Concomitant]
     Route: 048
  5. LASIX [Concomitant]
     Route: 048
  6. OXYCODONE [Concomitant]
     Route: 048
  7. LACTOSE [Concomitant]
     Dosage: AS DIRECTED
     Route: 048
  8. POTASSIUM [Concomitant]
     Dosage: AS DIRECTED
     Route: 048
  9. CALCIUM +D [Concomitant]
     Route: 048

REACTIONS (2)
  - Swelling face [Unknown]
  - Eye swelling [Unknown]
